FAERS Safety Report 15715600 (Version 1)
Quarter: 2018Q4

REPORT INFORMATION
  Report Type: Spontaneous
  Country: US (occurrence: US)
  Receive Date: 20181212
  Receipt Date: 20181212
  Transmission Date: 20190205
  Serious: Yes (Other)
  Sender: FDA-Public Use
  Company Number: US-TEIKOKU PHARMA USA-TPU2018-00866

PATIENT
  Sex: Female
  Weight: 62.2 kg

DRUGS (6)
  1. LIDOCAINE PATCH [Suspect]
     Active Substance: LIDOCAINE
     Indication: BACK PAIN
     Route: 061
     Dates: start: 20181015
  2. PREMERINE [Concomitant]
     Dates: start: 1971
  3. LIDOCAINE PATCH [Suspect]
     Active Substance: LIDOCAINE
     Route: 061
  4. LIDODERM [Suspect]
     Active Substance: LIDOCAINE
     Indication: BACK PAIN
     Route: 061
  5. LOSARTAN POTASSIUM. [Concomitant]
     Active Substance: LOSARTAN POTASSIUM
     Indication: HYPERTENSION
  6. HYDROCODONE BITARTRATE AND ACETAMINOPHEN [Concomitant]
     Active Substance: ACETAMINOPHEN\HYDROCODONE BITARTRATE

REACTIONS (4)
  - Application site vesicles [Not Recovered/Not Resolved]
  - Body height decreased [Not Recovered/Not Resolved]
  - Prescription drug used without a prescription [Unknown]
  - Spinal operation [Unknown]
